FAERS Safety Report 5299287-5 (Version None)
Quarter: 2007Q2

REPORT INFORMATION
  Report Type: 
  Country: None (occurrence: None)
  Receive Date: 20070417
  Receipt Date: 20070409
  Transmission Date: 20071010
  Serious: Yes (Hospitalization)
  Sender: FDA-Public Use
  Company Number: JP-MERCK-0703USA04700

PATIENT
  Age: 80 Year
  Sex: Male
  Weight: 56 kg

DRUGS (8)
  1. ZOCOR [Suspect]
     Indication: HYPERLIPIDAEMIA
     Route: 048
     Dates: start: 20031001, end: 20070305
  2. BLOPRESS [Suspect]
     Indication: HYPERTENSION
     Route: 048
     Dates: start: 20031001, end: 20070305
  3. ADALAT [Concomitant]
     Indication: HYPERTENSION
     Route: 048
     Dates: start: 20031001
  4. PARIET [Suspect]
     Indication: REFLUX OESOPHAGITIS
     Route: 048
     Dates: start: 20041219, end: 20070305
  5. MEILAX [Concomitant]
     Indication: PSYCHOSOMATIC DISEASE
     Route: 048
     Dates: start: 20031001, end: 20070305
  6. TAMSULOSIN HYDROCHLORIDE [Concomitant]
     Indication: BENIGN PROSTATIC HYPERPLASIA
     Route: 048
     Dates: start: 20060623, end: 20070305
  7. PROPIVERINE HYDROCHLORIDE [Suspect]
     Indication: POLLAKIURIA
     Route: 048
     Dates: start: 20061219, end: 20070305
  8. MINOCYCLINE HCL [Concomitant]
     Indication: INFECTION
     Route: 048
     Dates: start: 20070213, end: 20070305

REACTIONS (2)
  - REFLUX OESOPHAGITIS [None]
  - RHABDOMYOLYSIS [None]
